FAERS Safety Report 9705029 (Version 1)
Quarter: 2013Q4

REPORT INFORMATION
  Report Type: Spontaneous
  Country: US (occurrence: US)
  Receive Date: 20131122
  Receipt Date: 20131122
  Transmission Date: 20140711
  Serious: No
  Sender: FDA-Public Use
  Company Number: US-ABBVIE-13P-163-1135943-00

PATIENT
  Age: 59 Year
  Sex: Male
  Weight: 97.61 kg

DRUGS (7)
  1. ANDROGEL [Suspect]
     Indication: BLOOD TESTOSTERONE DECREASED
     Dates: start: 20130805
  2. ANDROGEL [Suspect]
     Dates: start: 20130820
  3. PAIN MEDICATION [Concomitant]
     Indication: BACK PAIN
  4. MUSCLE RELAXER [Concomitant]
     Indication: BACK PAIN
  5. CHOLESTEROL MEDICATION [Concomitant]
     Indication: BLOOD CHOLESTEROL INCREASED
  6. BLOOD PRESSURE MEDICATION [Concomitant]
     Indication: HYPERTENSION
  7. VITAMINS [Concomitant]
     Indication: VITAMIN SUPPLEMENTATION

REACTIONS (4)
  - Incorrect dose administered [Unknown]
  - Asthenia [Not Recovered/Not Resolved]
  - Depressed mood [Not Recovered/Not Resolved]
  - Blood testosterone decreased [Not Recovered/Not Resolved]
